FAERS Safety Report 7078716-0 (Version None)
Quarter: 2010Q4

REPORT INFORMATION
  Report Type: 
  Country: None (occurrence: None)
  Receive Date: 20101102
  Receipt Date: 20101028
  Transmission Date: 20110411
  Serious: Yes (Death)
  Sender: FDA-Public Use
  Company Number: GB-ASTRAZENECA-2010SE51510

PATIENT
  Age: 70 Year
  Sex: Male

DRUGS (1)
  1. IRESSA [Suspect]
     Dosage: TWO CYCLES OF IRESSA.
     Route: 048

REACTIONS (2)
  - LEFT VENTRICULAR FAILURE [None]
  - PULMONARY EMBOLISM [None]
